FAERS Safety Report 6621539-4 (Version None)
Quarter: 2010Q1

REPORT INFORMATION
  Report Type: 
  Country: None (occurrence: None)
  Receive Date: 20100309
  Receipt Date: 20100225
  Transmission Date: 20100710
  Serious: Yes (Other)
  Sender: FDA-Public Use
  Company Number: NL-WYE-G05651110

PATIENT
  Age: 34 Year
  Sex: Male
  Weight: 70 kg

DRUGS (2)
  1. EFFEXOR XR [Suspect]
     Indication: POST-TRAUMATIC STRESS DISORDER
     Dates: start: 20090101
  2. OXAZEPAM [Concomitant]
     Dosage: UNK
     Dates: start: 20090101, end: 20100101

REACTIONS (4)
  - AGGRESSION [None]
  - HYPERHIDROSIS [None]
  - THINKING ABNORMAL [None]
  - WEIGHT DECREASED [None]
